FAERS Safety Report 8371191-5 (Version None)
Quarter: 2012Q2

REPORT INFORMATION
  Report Type: 
  Country: None (occurrence: None)
  Receive Date: 20120518
  Receipt Date: 20120515
  Transmission Date: 20120825
  Serious: Yes (Death, Hospitalization)
  Sender: FDA-Public Use
  Company Number: PHHY2012TW040460

PATIENT
  Age: 49 Year
  Sex: Female

DRUGS (3)
  1. CYTOXAN [Suspect]
     Indication: BREAST CANCER STAGE II
     Dosage: 100 MG, UNK
     Dates: start: 20080301
  2. EPIRUBICIN [Suspect]
     Indication: BREAST CANCER STAGE II
     Dates: start: 20080301
  3. FLUOROURACIL [Suspect]
     Indication: BREAST CANCER STAGE II
     Dates: start: 20080301

REACTIONS (13)
  - PNEUMONIA [None]
  - SEPTIC SHOCK [None]
  - PYREXIA [None]
  - LYMPHOCYTOSIS [None]
  - DIZZINESS [None]
  - ANAEMIA [None]
  - DEATH [None]
  - PANCYTOPENIA [None]
  - ASTHENIA [None]
  - DECREASED APPETITE [None]
  - LEUKOCYTOSIS [None]
  - MULTI-ORGAN FAILURE [None]
  - B PRECURSOR TYPE ACUTE LEUKAEMIA [None]
